FAERS Safety Report 9549092 (Version 1)
Quarter: 2013Q3

REPORT INFORMATION
  Report Type: Spontaneous
  Country: US (occurrence: None)
  Receive Date: 20130724
  Receipt Date: 20130724
  Transmission Date: 20140515
  Serious: Yes (Other)
  Sender: FDA-Public Use
  Company Number: PHEH2013US004999

PATIENT
  Age: 52 Year
  Sex: Female

DRUGS (6)
  1. FANAPT (ILOPERIDONE) UNKNOWN [Suspect]
     Indication: BIPOLAR DISORDER
  2. METOPROLOL (METOPROLOL) [Concomitant]
  3. PRAVACHOL (PRAVASTATIN SODIUM) [Concomitant]
  4. SYNTHROID (LEVOTHYROXINE SODIUM) [Concomitant]
  5. LISINOPRIL (LISINOPRIL) [Concomitant]
  6. OMEPRAZOLE (OMEPRAZOLE) [Concomitant]

REACTIONS (2)
  - Electrocardiogram QT prolonged [None]
  - Syncope [None]
